FAERS Safety Report 13313600 (Version 2)
Quarter: 2020Q2

REPORT INFORMATION
  Report Type: Spontaneous
  Country: US (occurrence: US)
  Receive Date: 20170309
  Receipt Date: 20200506
  Transmission Date: 20200713
  Serious: No
  Sender: FDA-Public Use
  Company Number: US-PFIZER INC-2017097340

PATIENT
  Age: 80 Year
  Sex: Female

DRUGS (1)
  1. LYRICA [Suspect]
     Active Substance: PREGABALIN
     Indication: DIABETIC NEUROPATHY
     Dosage: UNK UNK, 2X/DAY

REACTIONS (6)
  - Hypersensitivity [Unknown]
  - Blood glucose increased [Unknown]
  - Rhinorrhoea [Unknown]
  - Sneezing [Unknown]
  - Hypoacusis [Unknown]
  - Disturbance in attention [Unknown]
